FAERS Safety Report 16257924 (Version 1)
Quarter: 2019Q2

REPORT INFORMATION
  Report Type: Spontaneous
  Country: US (occurrence: US)
  Receive Date: 20190430
  Receipt Date: 20190430
  Transmission Date: 20190711
  Serious: No
  Sender: FDA-Public Use
  Company Number: US-LEXICON PHARMACEUTICALS, INC-19-1606-00445

PATIENT
  Sex: Female

DRUGS (14)
  1. TELOTRISTAT ETHYL [Suspect]
     Active Substance: TELOTRISTAT ETHYL
     Indication: CARCINOID TUMOUR
  2. DILAUDID [Concomitant]
     Active Substance: HYDROMORPHONE HYDROCHLORIDE
  3. MULTIVITAMIN [Concomitant]
     Active Substance: VITAMINS
  4. COMPAZINE [Concomitant]
     Active Substance: PROCHLORPERAZINE MALEATE
  5. OCTREOTIDE. [Concomitant]
     Active Substance: OCTREOTIDE
  6. CICLOPIROX. [Concomitant]
     Active Substance: CICLOPIROX
  7. NAPROXEN. [Concomitant]
     Active Substance: NAPROXEN
  8. FUROSEMIDE. [Concomitant]
     Active Substance: FUROSEMIDE
  9. OXYCONTIN [Concomitant]
     Active Substance: OXYCODONE HYDROCHLORIDE
  10. AFINITOR [Concomitant]
     Active Substance: EVEROLIMUS
  11. TELOTRISTAT ETHYL [Suspect]
     Active Substance: TELOTRISTAT ETHYL
     Indication: CARCINOID SYNDROME
     Route: 048
  12. OXYCODONE [Concomitant]
     Active Substance: OXYCODONE
  13. CREON [Concomitant]
     Active Substance: PANCRELIPASE AMYLASE\PANCRELIPASE LIPASE\PANCRELIPASE PROTEASE
  14. SPIRONOLACT [Concomitant]
     Active Substance: SPIRONOLACTONE

REACTIONS (1)
  - Product dose omission [Not Recovered/Not Resolved]
